FAERS Safety Report 6148815-6 (Version None)
Quarter: 2009Q2

REPORT INFORMATION
  Report Type: 
  Country: None (occurrence: None)
  Receive Date: 20090406
  Receipt Date: 20090331
  Transmission Date: 20091009
  Serious: Yes (Other)
  Sender: FDA-Public Use
  Company Number: 1000005570

PATIENT
  Age: 33 Year
  Sex: Female
  Weight: 67 kg

DRUGS (1)
  1. CERVIDIL [Suspect]
     Dosage: (10 MG), VAGINAL
     Route: 067

REACTIONS (3)
  - BLADDER DISORDER [None]
  - HAEMORRHAGE [None]
  - UTERINE RUPTURE [None]
